FAERS Safety Report 18447673 (Version 4)
Quarter: 2022Q1

REPORT INFORMATION
  Report Type: Report from Study
  Country: GR (occurrence: GR)
  Receive Date: 20201030
  Receipt Date: 20220322
  Transmission Date: 20220423
  Serious: Yes (Hospitalization, Other)
  Sender: FDA-Public Use
  Company Number: GR-TAKEDA-GR202021925

PATIENT
  Age: 40 Year
  Sex: Male
  Weight: 77 kg

DRUGS (10)
  1. ADVATE [Suspect]
     Active Substance: ANTIHEMOPHILIC FACTOR, HUMAN RECOMBINANT
     Indication: Factor VIII deficiency
     Dosage: 2000 INTERNATIONAL UNIT, 3X/DAY:TID (THREE TIMES PER DAY)
     Route: 042
     Dates: start: 20170907, end: 20170911
  2. ADVATE [Suspect]
     Active Substance: ANTIHEMOPHILIC FACTOR, HUMAN RECOMBINANT
     Indication: Factor VIII deficiency
     Dosage: 2000 INTERNATIONAL UNIT, 3X/DAY:TID (THREE TIMES PER DAY)
     Route: 042
     Dates: start: 20170907, end: 20170911
  3. ADVATE [Suspect]
     Active Substance: ANTIHEMOPHILIC FACTOR, HUMAN RECOMBINANT
     Indication: Factor VIII deficiency
     Dosage: 2000 INTERNATIONAL UNIT, 3X/DAY:TID (THREE TIMES PER DAY)
     Route: 042
     Dates: start: 20170907, end: 20170911
  4. ADVATE [Suspect]
     Active Substance: ANTIHEMOPHILIC FACTOR, HUMAN RECOMBINANT
     Indication: Prophylaxis
     Dosage: 2000 INTERNATIONAL UNIT, 2X/DAY:BID (TWICE PER DAY)
     Route: 042
     Dates: start: 20170911, end: 20170919
  5. ADVATE [Suspect]
     Active Substance: ANTIHEMOPHILIC FACTOR, HUMAN RECOMBINANT
     Indication: Prophylaxis
     Dosage: 2000 INTERNATIONAL UNIT, 2X/DAY:BID (TWICE PER DAY)
     Route: 042
     Dates: start: 20170911, end: 20170919
  6. ADVATE [Suspect]
     Active Substance: ANTIHEMOPHILIC FACTOR, HUMAN RECOMBINANT
     Indication: Prophylaxis
     Dosage: 2000 INTERNATIONAL UNIT, 2X/DAY:BID (TWICE PER DAY)
     Route: 042
     Dates: start: 20170911, end: 20170919
  7. ADVATE [Suspect]
     Active Substance: ANTIHEMOPHILIC FACTOR, HUMAN RECOMBINANT
     Dosage: 2000 INTERNATIONAL UNIT (ADMINISTRATION SITE: ARM)
     Route: 042
     Dates: start: 20200625
  8. ADVATE [Suspect]
     Active Substance: ANTIHEMOPHILIC FACTOR, HUMAN RECOMBINANT
     Dosage: 2000 INTERNATIONAL UNIT (ADMINISTRATION SITE: ARM)
     Route: 042
     Dates: start: 20200625
  9. ADVATE [Suspect]
     Active Substance: ANTIHEMOPHILIC FACTOR, HUMAN RECOMBINANT
     Dosage: 2000 INTERNATIONAL UNIT (ADMINISTRATION SITE: ARM)
     Route: 042
     Dates: start: 20200625
  10. BORTEZOMIB;CYCLOPHOSPHAMIDE;DEXAMETHASONE [Concomitant]
     Indication: Plasma cell myeloma
     Dosage: UNK,4 TRATMENT CYCLES 21 DAYS EACH CYCLE
     Route: 065
     Dates: start: 201906, end: 201908

REACTIONS (1)
  - Plasma cell myeloma [Recovered/Resolved]

NARRATIVE: CASE EVENT DATE: 20180601
